FAERS Safety Report 5557444-4 (Version None)
Quarter: 2007Q4

REPORT INFORMATION
  Report Type: 
  Country: None (occurrence: None)
  Receive Date: 20071214
  Receipt Date: 20071210
  Transmission Date: 20080405
  Serious: Yes (Hospitalization)
  Sender: FDA-Public Use
  Company Number: BR-JNJFOC-20071201944

PATIENT
  Age: 55 Year
  Sex: Female

DRUGS (3)
  1. HALDOL [Suspect]
     Indication: INTENTIONAL DRUG MISUSE
     Route: 048
  2. BIPERIDEN HYDROCHLORIDE TAB [Suspect]
     Indication: INTENTIONAL DRUG MISUSE
  3. DIPYRONE [Suspect]
     Indication: INTENTIONAL DRUG MISUSE

REACTIONS (4)
  - DISORIENTATION [None]
  - DYSSTASIA [None]
  - INTENTIONAL DRUG MISUSE [None]
  - MYDRIASIS [None]
